FAERS Safety Report 14991027 (Version 3)
Quarter: 2018Q2

REPORT INFORMATION
  Report Type: Spontaneous
  Country: US (occurrence: US)
  Receive Date: 20180608
  Receipt Date: 20180626
  Transmission Date: 20180711
  Serious: Yes (Other)
  Sender: FDA-Public Use
  Company Number: US-ASTRAZENECA-2018SE73234

PATIENT
  Age: 58 Year
  Sex: Male
  Weight: 121.1 kg

DRUGS (20)
  1. NEXIUM [Suspect]
     Active Substance: ESOMEPRAZOLE MAGNESIUM
     Indication: GASTROOESOPHAGEAL REFLUX DISEASE
     Dosage: 40MG EITHER ONCE OR TWICE DAILY DEPENDING ON HOW HE FEELS
     Route: 048
  2. LISINOPRIL. [Concomitant]
     Active Substance: LISINOPRIL
     Route: 048
     Dates: start: 2018
  3. NEXIUM [Suspect]
     Active Substance: ESOMEPRAZOLE MAGNESIUM
     Indication: ABDOMINAL DISCOMFORT
     Dosage: 40MG EITHER ONCE OR TWICE DAILY DEPENDING ON HOW HE FEELS
     Route: 048
  4. METFORMIN [Concomitant]
     Active Substance: METFORMIN HYDROCHLORIDE
     Route: 048
  5. PREGABALIN. [Concomitant]
     Active Substance: PREGABALIN
     Indication: SCIATICA
     Route: 048
  6. FINASTERIDE. [Concomitant]
     Active Substance: FINASTERIDE
     Dosage: 5.0MG UNKNOWN
     Route: 048
  7. TUJEO [Concomitant]
     Route: 058
  8. TERAZOSIN [Concomitant]
     Active Substance: TERAZOSIN\TERAZOSIN HYDROCHLORIDE
     Route: 048
  9. MIRAPEX [Concomitant]
     Active Substance: PRAMIPEXOLE DIHYDROCHLORIDE
     Indication: RESTLESS LEGS SYNDROME
     Dosage: TWO TIMES A DAY
     Route: 048
  10. URSODIOL. [Concomitant]
     Active Substance: URSODIOL
     Dosage: 500 MG, 2 CAPSULES IN THE MORNING AND 1 CAPSULE AT NIGHT.
     Route: 048
  11. NOVOLOG MIX 70/30 [Concomitant]
     Active Substance: INSULIN ASPART
     Route: 058
  12. METOPROLOL TARTRATE. [Suspect]
     Active Substance: METOPROLOL TARTRATE
     Route: 048
  13. PROVIGIL [Concomitant]
     Active Substance: MODAFINIL
     Route: 048
  14. TOPIRAMATE. [Concomitant]
     Active Substance: TOPIRAMATE
     Route: 048
  15. LIPITOR [Concomitant]
     Active Substance: ATORVASTATIN CALCIUM
     Route: 048
  16. EFFEXOR XR [Concomitant]
     Active Substance: VENLAFAXINE HYDROCHLORIDE
     Indication: DEPRESSION
     Route: 048
  17. ROBAXIN [Concomitant]
     Active Substance: METHOCARBAMOL
     Indication: BACK INJURY
     Route: 048
  18. CHERITUSSIN WITH CODEINE [Concomitant]
     Indication: COUGH
     Dosage: AS REQUIRED
     Route: 048
  19. NORVASC [Concomitant]
     Active Substance: AMLODIPINE BESYLATE
     Route: 048
  20. TRAMADOL. [Concomitant]
     Active Substance: TRAMADOL
     Route: 048

REACTIONS (4)
  - Off label use [Unknown]
  - Neoplasm malignant [Recovered/Resolved]
  - Drug dependence [Recovered/Resolved]
  - Product use issue [Unknown]

NARRATIVE: CASE EVENT DATE: 2002
